FAERS Safety Report 7527902-1 (Version None)
Quarter: 2011Q2

REPORT INFORMATION
  Report Type: 
  Country: None (occurrence: None)
  Receive Date: 20110607
  Receipt Date: 20030325
  Transmission Date: 20111010
  Serious: Yes (Other)
  Sender: FDA-Public Use
  Company Number: PHFR2003GB01510

PATIENT
  Sex: Female

DRUGS (4)
  1. CITALOPRAM HYDROBROMIDE [Concomitant]
  2. BENZHEXOL [Concomitant]
  3. LAMOTRIGINE [Concomitant]
  4. CLOZARIL [Suspect]
     Indication: SCHIZOPHRENIA
     Dosage: 250 MG, DAILY
     Route: 048
     Dates: start: 20021206

REACTIONS (4)
  - ATAXIA [None]
  - LABYRINTHITIS [None]
  - DRUG LEVEL DECREASED [None]
  - DIZZINESS [None]
